FAERS Safety Report 6033089-7 (Version None)
Quarter: 2009Q1

REPORT INFORMATION
  Report Type: 
  Country: None (occurrence: None)
  Receive Date: 20090109
  Receipt Date: 20090107
  Transmission Date: 20090719
  Serious: Yes (Death, Life-Threatening)
  Sender: FDA-Public Use
  Company Number: PHHO2008IT14933

PATIENT
  Sex: Female
  Weight: 60 kg

DRUGS (1)
  1. STI571/CGP57148B T35717+CAPS [Suspect]
     Indication: CHRONIC MYELOID LEUKAEMIA
     Dosage: 600 MG, QD
     Route: 048
     Dates: start: 20050624, end: 20070301

REACTIONS (3)
  - COLECTOMY [None]
  - COLON CANCER [None]
  - DEATH [None]
